FAERS Safety Report 14196324 (Version 1)
Quarter: 2017Q4

REPORT INFORMATION
  Report Type: Report from Study
  Country: US (occurrence: US)
  Receive Date: 20171116
  Receipt Date: 20171116
  Transmission Date: 20180321
  Serious: Yes (Other)
  Sender: FDA-Public Use
  Company Number: US-JNJFOC-20171117743

PATIENT
  Sex: Male

DRUGS (2)
  1. OXYMORPHONE [Concomitant]
     Active Substance: OXYMORPHONE
  2. IMBRUVICA [Suspect]
     Active Substance: IBRUTINIB
     Indication: CHRONIC LYMPHOCYTIC LEUKAEMIA
     Route: 048
     Dates: start: 20170506, end: 2017

REACTIONS (2)
  - Treatment noncompliance [Unknown]
  - Transient ischaemic attack [Unknown]
